FAERS Safety Report 6007907-2 (Version None)
Quarter: 2008Q4

REPORT INFORMATION
  Report Type: 
  Country: None (occurrence: None)
  Receive Date: 20081217
  Receipt Date: 20081014
  Transmission Date: 20090506
  Serious: No
  Sender: FDA-Public Use
  Company Number: US-ASTRAZENECA-2008UW14076

PATIENT
  Age: 83 Year
  Sex: Male
  Weight: 86.2 kg

DRUGS (15)
  1. CRESTOR [Suspect]
     Indication: BLOOD CHOLESTEROL INCREASED
     Route: 048
  2. REQUIP [Concomitant]
  3. ASPIRIN [Concomitant]
  4. AMOXIPINE [Concomitant]
  5. COUMADIN [Concomitant]
  6. LISINOPRIL [Concomitant]
  7. RENEXA [Concomitant]
  8. SULFATHALAZINE [Concomitant]
  9. LOPRESSOR [Concomitant]
  10. ARACEP [Concomitant]
  11. MAGNESIUM MALATE [Concomitant]
  12. COQ10 [Concomitant]
  13. NEXIUM [Concomitant]
     Route: 048
  14. NITROGLYCERIN [Concomitant]
  15. DONATOL [Concomitant]
     Indication: PAIN

REACTIONS (2)
  - NAUSEA [None]
  - OESOPHAGEAL SPASM [None]
